FAERS Safety Report 5884886-X (Version None)
Quarter: 2008Q3

REPORT INFORMATION
  Report Type: 
  Country: None (occurrence: None)
  Receive Date: 20080915
  Receipt Date: 20080915
  Transmission Date: 20090109
  Serious: No
  Sender: FDA-Public Use
  Company Number: None

PATIENT
  Age: 1330 Hour
  Sex: Female

DRUGS (1)
  1. DEFINITY [Suspect]
     Dosage: 1.5 CC ONCE IV
     Route: 042

REACTIONS (3)
  - DYSPNOEA [None]
  - FLUSHING [None]
  - TACHYCARDIA [None]
